FAERS Safety Report 14555230 (Version 1)
Quarter: 2018Q1

REPORT INFORMATION
  Report Type: Spontaneous
  Country: US (occurrence: US)
  Receive Date: 20180220
  Receipt Date: 20180220
  Transmission Date: 20180509
  Serious: No
  Sender: FDA-Public Use
  Company Number: US-IPSEN BIOPHARMACEUTICALS, INC.-2018-00333

PATIENT
  Age: 56 Year
  Sex: Female

DRUGS (3)
  1. DYSPORT [Suspect]
     Active Substance: ABOBOTULINUMTOXINA
     Indication: SKIN WRINKLING
     Dosage: 50 IU
     Route: 065
     Dates: start: 20171218, end: 20171218
  2. RESTYLANE [Suspect]
     Active Substance: HYALURONIC ACID
     Indication: LIP COSMETIC PROCEDURE
     Dates: start: 20171218
  3. SCULPTRA AESTHETIC [Suspect]
     Active Substance: POLYLACTIDE, L-
     Indication: SKIN COSMETIC PROCEDURE
     Dates: start: 20171228, end: 20171228

REACTIONS (3)
  - Eye swelling [Not Recovered/Not Resolved]
  - Swelling face [Not Recovered/Not Resolved]
  - Lip swelling [Not Recovered/Not Resolved]

NARRATIVE: CASE EVENT DATE: 20171230
